FAERS Safety Report 4840369-7 (Version None)
Quarter: 2005Q4

REPORT INFORMATION
  Report Type: 
  Country: None (occurrence: None)
  Receive Date: 20051025
  Receipt Date: 20050322
  Transmission Date: 20060501
  Serious: Yes (Hospitalization)
  Sender: FDA-Public Use
  Company Number: 2005-BP-04729BP

PATIENT
  Age: 50 Year
  Sex: Female

DRUGS (1)
  1. COMBIVENT [Suspect]
     Dosage: (SEE TEXT,18MCG/103MCG STRENGTH),IH

REACTIONS (2)
  - CHRONIC OBSTRUCTIVE PULMONARY DISEASE [None]
  - DRUG INEFFECTIVE [None]
